FAERS Safety Report 6139452-8 (Version None)
Quarter: 2009Q2

REPORT INFORMATION
  Report Type: 
  Country: None (occurrence: None)
  Receive Date: 20090401
  Receipt Date: 20090326
  Transmission Date: 20091009
  Serious: Yes (Hospitalization)
  Sender: FDA-Public Use
  Company Number: PHHY2009US11364

PATIENT
  Age: 44 Year
  Sex: Female

DRUGS (3)
  1. CYCLOSPORINE [Suspect]
     Indication: RENAL TRANSPLANT
  2. AZATHIOPRINE [Suspect]
     Indication: RENAL TRANSPLANT
  3. PREDNISONE [Suspect]
     Indication: RENAL TRANSPLANT

REACTIONS (3)
  - HUMAN EHRLICHIOSIS [None]
  - MALAISE [None]
  - PYREXIA [None]
